FAERS Safety Report 6051885-7 (Version None)
Quarter: 2009Q1

REPORT INFORMATION
  Report Type: 
  Country: None (occurrence: None)
  Receive Date: 20090126
  Receipt Date: 20051222
  Transmission Date: 20090719
  Serious: Yes (Other)
  Sender: FDA-Public Use
  Company Number: US-PFIZER INC-2008159921

PATIENT
  Sex: Male
  Weight: 91.16 kg

DRUGS (6)
  1. CELECOXIB [Suspect]
     Indication: ADENOMATOUS POLYPOSIS COLI
     Dosage: 400 MG, 1X/DAY
     Route: 048
     Dates: start: 20020214, end: 20020629
  2. ASPIRIN [Suspect]
     Indication: PROPHYLAXIS
     Dosage: UNK
     Dates: start: 20011030
  3. RABEPRAZOLE [Concomitant]
     Dosage: UNK
     Dates: start: 20010802
  4. FOSINOPRIL [Concomitant]
     Dosage: UNK
     Dates: start: 20020129
  5. SIMVASTATIN [Concomitant]
  6. TERAZOSIN [Concomitant]

REACTIONS (1)
  - GASTRIC ULCER [None]
